FAERS Safety Report 17399885 (Version 1)
Quarter: 2020Q1

REPORT INFORMATION
  Report Type: Spontaneous
  Country: US (occurrence: US)
  Receive Date: 20200211
  Receipt Date: 20200211
  Transmission Date: 20200409
  Serious: Yes (Other)
  Sender: FDA-Public Use
  Company Number: US-HORIZON-ACT-0077-2020

PATIENT
  Age: 53 Year
  Sex: Male

DRUGS (1)
  1. ACTIMMUNE [Suspect]
     Active Substance: INTERFERON GAMMA-1B
     Indication: CUTANEOUS T-CELL LYMPHOMA
     Dosage: 100?G 3 TIMES WEEKLY

REACTIONS (4)
  - Off label use [Unknown]
  - Malaise [Unknown]
  - Chemotherapy [Unknown]
  - Condition aggravated [Unknown]
